FAERS Safety Report 22380743 (Version 1)
Quarter: 2023Q2

REPORT INFORMATION
  Report Type: Spontaneous
  Country: IT (occurrence: IT)
  Receive Date: 20230530
  Receipt Date: 20230530
  Transmission Date: 20230722
  Serious: Yes (Other)
  Sender: FDA-Public Use
  Company Number: None

PATIENT
  Age: 82 Year
  Sex: Male

DRUGS (6)
  1. BISOPROLOL FUMARATE [Suspect]
     Active Substance: BISOPROLOL FUMARATE
     Indication: Product used for unknown indication
     Dosage: 1.25 MG, QD (DURATA TP ATTRIBUITA DI UFFICIO.)
     Route: 065
     Dates: start: 20230201, end: 20230516
  2. EZETIMIBE\ROSUVASTATIN CALCIUM [Suspect]
     Active Substance: EZETIMIBE\ROSUVASTATIN CALCIUM
     Indication: Product used for unknown indication
     Dosage: 1 DOSAGE FORM, Q24H (DURATA TP ATTRIBUITA DI UFFICIO. 20/10 MG 1CP/DIE)
     Route: 065
  3. PANTOPAN [Suspect]
     Active Substance: PANTOPRAZOLE SODIUM
     Indication: Product used for unknown indication
     Dosage: 20 MG, Q24H (DURATA TP ATTRIBUITA DI UFFICIO.)
     Route: 065
     Dates: start: 20230101, end: 20230516
  4. ASPIRIN [Suspect]
     Active Substance: ASPIRIN
     Indication: Product used for unknown indication
     Dosage: 100MG (DURATA TP ATTRIBUITA DI UFFICIO.)
     Route: 065
     Dates: start: 20230101, end: 20230516
  5. TICAGRELOR [Suspect]
     Active Substance: TICAGRELOR
     Indication: Product used for unknown indication
     Dosage: 120 MG, Q24H (DURATA TP ATTRIBUITA DI UFFICIO.)
     Route: 065
     Dates: start: 20230101, end: 20230516
  6. AMLODIPINE\INDAPAMIDE\PERINDOPRIL [Suspect]
     Active Substance: AMLODIPINE\INDAPAMIDE\PERINDOPRIL
     Indication: Product used for unknown indication
     Dosage: UNK
     Route: 065
     Dates: start: 20230101, end: 20230516

REACTIONS (1)
  - Eyelid haematoma [Recovering/Resolving]

NARRATIVE: CASE EVENT DATE: 20230415
